FAERS Safety Report 14216040 (Version 1)
Quarter: 2017Q4

REPORT INFORMATION
  Report Type: Spontaneous
  Country: US (occurrence: US)
  Receive Date: 20171122
  Receipt Date: 20171122
  Transmission Date: 20180321
  Serious: No
  Sender: FDA-Public Use
  Company Number: US-ASTRAZENECA-2017SF16167

PATIENT
  Age: 71 Year
  Sex: Male
  Weight: 74.8 kg

DRUGS (4)
  1. SEROQUEL [Suspect]
     Active Substance: QUETIAPINE FUMARATE
     Indication: ANXIETY
     Route: 048
     Dates: start: 2014, end: 2014
  2. SEROQUEL [Suspect]
     Active Substance: QUETIAPINE FUMARATE
     Indication: INSOMNIA
     Dosage: GENERIC, 25 MG, AT NIGHT
     Route: 048
     Dates: start: 2014
  3. SEROQUEL [Suspect]
     Active Substance: QUETIAPINE FUMARATE
     Indication: ANXIETY
     Dosage: GENERIC, 25 MG, AT NIGHT
     Route: 048
     Dates: start: 2014
  4. SEROQUEL [Suspect]
     Active Substance: QUETIAPINE FUMARATE
     Indication: INSOMNIA
     Route: 048
     Dates: start: 2014, end: 2014

REACTIONS (11)
  - Pain [Not Recovered/Not Resolved]
  - Muscle injury [Not Recovered/Not Resolved]
  - Musculoskeletal stiffness [Not Recovered/Not Resolved]
  - Product use in unapproved indication [Unknown]
  - Myalgia [Not Recovered/Not Resolved]
  - Insomnia [Recovered/Resolved]
  - Arthralgia [Not Recovered/Not Resolved]
  - Poor quality sleep [Recovered/Resolved]
  - Musculoskeletal pain [Not Recovered/Not Resolved]
  - Inflammation [Not Recovered/Not Resolved]
  - Off label use [Unknown]

NARRATIVE: CASE EVENT DATE: 2017
